FAERS Safety Report 9149034 (Version 1)
Quarter: 2013Q1

REPORT INFORMATION
  Report Type: Spontaneous
  Country: IT (occurrence: None)
  Receive Date: 20130131
  Receipt Date: 20130131
  Transmission Date: 20140127
  Serious: Yes (Hospitalization)
  Sender: FDA-Public Use
  Company Number: AUR-APL-2013-01068

PATIENT
  Age: 83 Year
  Sex: Female

DRUGS (7)
  1. LEVOFLOXACIN (LEVOFLOXACIN) [Suspect]
     Indication: URINARY TRACT INFECTION
     Dosage: ONE DOSE UNIT/TOTAL, ORAL
     Route: 048
     Dates: start: 20121023, end: 20121023
  2. FERRO-GRAD (FERROUS SULFATE) [Concomitant]
  3. ISOPTIN (VERAPAMIL) [Concomitant]
  4. EBIXA (MEMANTINE HYDROCHLORIDE) [Concomitant]
  5. LEXOTAN (BROMAZEPAM) [Concomitant]
  6. ACETYLSALICYLIC ACID (ACETYLSALICYLIC ACID) [Concomitant]
  7. CITALOPRAM (CITALOPRAMIDE) [Concomitant]

REACTIONS (3)
  - Urticaria [None]
  - Palatal oedema [None]
  - Palatal oedema [None]
